FAERS Safety Report 9300822 (Version 1)
Quarter: 2013Q2

REPORT INFORMATION
  Report Type: Spontaneous
  Country: US (occurrence: None)
  Receive Date: 20130520
  Receipt Date: 20130520
  Transmission Date: 20140414
  Serious: Yes (Life-Threatening, Other)
  Sender: FDA-Public Use
  Company Number: None

PATIENT
  Age: 59 Year
  Sex: Male
  Weight: 106.6 kg

DRUGS (1)
  1. AMBIEN [Suspect]
     Indication: INSOMNIA
     Dosage: NIGHTLY
     Route: 048
     Dates: start: 20120301, end: 20120831

REACTIONS (8)
  - Delusion [None]
  - Hallucinations, mixed [None]
  - Aggression [None]
  - Abnormal behaviour [None]
  - Imprisonment [None]
  - Theft [None]
  - Road traffic accident [None]
  - Weight decreased [None]
